FAERS Safety Report 6821622-4 (Version None)
Quarter: 2010Q3

REPORT INFORMATION
  Report Type: 
  Country: None (occurrence: None)
  Receive Date: 20100707
  Receipt Date: 20090516
  Transmission Date: 20110219
  Serious: No
  Sender: FDA-Public Use
  Company Number: US-PFIZER INC-2009178002

PATIENT
  Sex: Female
  Weight: 63.492 kg

DRUGS (3)
  1. SERTRALINE HCL [Suspect]
     Indication: DEPRESSION
  2. ZOLOFT [Suspect]
     Indication: DEPRESSION
     Dosage: UNK
  3. LEVOTHYROXINE SODIUM [Concomitant]

REACTIONS (4)
  - ANXIETY [None]
  - DRUG INEFFECTIVE [None]
  - FEELING ABNORMAL [None]
  - THYROID FUNCTION TEST ABNORMAL [None]
